FAERS Safety Report 25988147 (Version 1)
Quarter: 2025Q4

REPORT INFORMATION
  Report Type: Spontaneous
  Country: CN (occurrence: CN)
  Receive Date: 20251103
  Receipt Date: 20251103
  Transmission Date: 20260118
  Serious: Yes (Other)
  Sender: ACCORD
  Company Number: CN-Accord-509531

PATIENT
  Age: 73 Year
  Sex: Male

DRUGS (10)
  1. ATROPINE [Suspect]
     Active Substance: ATROPINE
     Indication: Chemical poisoning
     Dosage: INITIALLY AND ESCALATION OF ATROPINE DOSING
     Route: 042
  2. PRALIDOXIME IODIDE [Concomitant]
     Indication: Chemical poisoning
  3. ACTIVATED CHARCOAL [Concomitant]
     Active Substance: ACTIVATED CHARCOAL
     Indication: Chemical poisoning
     Dosage: TOTAL ?IN DIVIDED ORAL DOSES.
     Route: 048
  4. OXYGEN [Concomitant]
     Active Substance: OXYGEN
     Indication: Oxygen saturation decreased
     Dosage: HIGH-FLOW
  5. DIAZEPAM [Concomitant]
     Active Substance: DIAZEPAM
  6. VITAMIN K1 [Concomitant]
     Active Substance: PHYTONADIONE
     Indication: Chemical poisoning
  7. HEMOCOAGULASE [Concomitant]
     Indication: Chemical poisoning
  8. PIPERACILLIN AND TAZOBACTAM [Concomitant]
     Active Substance: PIPERACILLIN SODIUM\TAZOBACTAM SODIUM
     Indication: Pneumonia aspiration
  9. PRALIDOXIME IODIDE [Concomitant]
     Indication: Chemical poisoning
  10. ATROPINE [Suspect]
     Active Substance: ATROPINE
     Indication: Chemical poisoning
     Route: 042

REACTIONS (3)
  - Toxicity to various agents [Unknown]
  - Myocardial injury [Unknown]
  - Rhabdomyolysis [Unknown]
